FAERS Safety Report 4326762-X (Version None)
Quarter: 2004Q1

REPORT INFORMATION
  Report Type: 
  Country: None (occurrence: None)
  Receive Date: 20040330
  Receipt Date: 20040330
  Transmission Date: 20041129
  Serious: Yes (Hospitalization)
  Sender: FDA-Public Use
  Company Number: None

PATIENT
  Age: 72 Year
  Sex: Female
  Weight: 91.4 kg

DRUGS (18)
  1. CPT-11 (IRINOTECAN) [Suspect]
     Indication: GLIOBLASTOMA MULTIFORME
     Dosage: 350 MG/M2 EVERY 3 WEEKS
     Dates: start: 20040205, end: 20040317
  2. THALOMID [Suspect]
     Dosage: 100 MG DAILY INCREASE BY 100 EVERY 2 WEEKS
     Dates: start: 20040205, end: 20040317
  3. CIPROFLOXACIN HCL [Concomitant]
  4. LOVENOX [Concomitant]
  5. LOPERAMIDE HCL [Concomitant]
  6. CRANBERRY [Concomitant]
  7. GARLIC [Concomitant]
  8. ECHINACEA [Concomitant]
  9. FLAX SEED OIL [Concomitant]
  10. COD LIVER OIL [Concomitant]
  11. POTASSIUM CHLORIDE [Concomitant]
  12. SELENIUM TRACE METAL ADDITIVE [Concomitant]
  13. ZINC [Concomitant]
  14. VITAMIN E [Concomitant]
  15. AMBULA [Concomitant]
  16. HYDROCHLOROTHIAZIDE [Concomitant]
  17. DEXAMETHASONE [Concomitant]
  18. MULTIVITAMINS W-MINERALS [Concomitant]

REACTIONS (7)
  - BLOOD POTASSIUM DECREASED [None]
  - DEEP VEIN THROMBOSIS [None]
  - DEHYDRATION [None]
  - DIARRHOEA [None]
  - FALL [None]
  - HEAD INJURY [None]
  - OEDEMA [None]
